FAERS Safety Report 25886816 (Version 1)
Quarter: 2025Q4

REPORT INFORMATION
  Report Type: Spontaneous
  Country: US (occurrence: None)
  Receive Date: 20251006
  Receipt Date: 20251006
  Transmission Date: 20260118
  Serious: Yes (Other)
  Sender: FDA-CTU
  Company Number: None

PATIENT
  Age: 65 Year
  Sex: Female

DRUGS (1)
  1. SIMLANDI [Suspect]
     Active Substance: ADALIMUMAB-RYVK
     Indication: Psoriatic arthropathy
     Dosage: 40/0.4 MG/ML  Q 14 DAYS  SUBCUTNEOUS?
     Route: 058
     Dates: end: 20251006

REACTIONS (3)
  - Blister [None]
  - Pruritus [None]
  - Injection related reaction [None]
